FAERS Safety Report 7044973-X (Version None)
Quarter: 2010Q4

REPORT INFORMATION
  Report Type: 
  Country: None (occurrence: None)
  Receive Date: 20101014
  Receipt Date: 20101008
  Transmission Date: 20110411
  Serious: Yes (Other)
  Sender: FDA-Public Use
  Company Number: JP-BRISTOL-MYERS SQUIBB COMPANY-15283294

PATIENT
  Age: 50 Year
  Sex: Male

DRUGS (5)
  1. VEPESID [Suspect]
     Indication: DIFFUSE LARGE B-CELL LYMPHOMA
     Dosage: ALSO 200X3MG/DAY 07AUG2009 TO 08AUG2009
     Route: 041
     Dates: start: 20090807, end: 20090809
  2. ENDOXAN [Suspect]
     Indication: DIFFUSE LARGE B-CELL LYMPHOMA
     Route: 041
     Dates: start: 20080807, end: 20080808
  3. MELPHALAN HYDROCHLORIDE [Suspect]
     Indication: DIFFUSE LARGE B-CELL LYMPHOMA
     Route: 041
     Dates: start: 20080810
  4. DECADRON [Suspect]
     Indication: DIFFUSE LARGE B-CELL LYMPHOMA
     Dosage: INJ
     Route: 041
     Dates: start: 20090807, end: 20090810
  5. POLAPREZINC [Concomitant]
     Indication: PROPHYLAXIS
     Route: 048

REACTIONS (3)
  - DIARRHOEA [None]
  - RENAL IMPAIRMENT [None]
  - STOMATITIS [None]
